FAERS Safety Report 4878825-8 (Version None)
Quarter: 2006Q1

REPORT INFORMATION
  Report Type: 
  Country: None (occurrence: None)
  Receive Date: 20060112
  Receipt Date: 20060109
  Transmission Date: 20060701
  Serious: Yes (Other)
  Sender: FDA-Public Use
  Company Number: US-GLAXOSMITHKLINE-A0588333A

PATIENT
  Age: 18 Year
  Sex: Male

DRUGS (5)
  1. WELLBUTRIN [Suspect]
     Indication: ANXIETY
     Dosage: 300MG PER DAY
     Route: 048
     Dates: start: 20050101, end: 20060108
  2. PAXIL [Suspect]
     Indication: GENERALISED ANXIETY DISORDER
     Dosage: 25MG PER DAY
     Route: 048
     Dates: start: 20020801, end: 20051201
  3. PEPTO BISMOL [Concomitant]
  4. WORMWOOD [Concomitant]
  5. PHENERGAN [Concomitant]

REACTIONS (5)
  - DEPRESSION [None]
  - GRAND MAL CONVULSION [None]
  - SEXUAL DYSFUNCTION [None]
  - STOMACH DISCOMFORT [None]
  - SUICIDAL IDEATION [None]
